FAERS Safety Report 19478597 (Version 2)
Quarter: 2021Q3

REPORT INFORMATION
  Report Type: Report from Study
  Country: CA (occurrence: CA)
  Receive Date: 20210630
  Receipt Date: 20210709
  Transmission Date: 20211014
  Serious: Yes (Other)
  Sender: FDA-Public Use
  Company Number: CA-JNJFOC-20201052115

PATIENT
  Age: 65 Year
  Sex: Female
  Weight: 92.8 kg

DRUGS (9)
  1. TELMISARTAN. [Concomitant]
     Active Substance: TELMISARTAN
     Dosage: STRENGTH = 80 MG
     Route: 048
  2. SIMPONI [Suspect]
     Active Substance: GOLIMUMAB
     Route: 042
     Dates: start: 20190801
  3. PANTOPRAZOLE [Concomitant]
     Active Substance: PANTOPRAZOLE
     Dosage: STRENGTH = 40 MG
     Route: 048
  4. SIMPONI [Suspect]
     Active Substance: GOLIMUMAB
     Route: 042
     Dates: start: 20190801
  5. ROSUVASTATIN. [Concomitant]
     Active Substance: ROSUVASTATIN
     Dosage: STRENGTH = 40 MG
     Route: 048
  6. ALENDRONATE [Concomitant]
     Active Substance: ALENDRONATE SODIUM
  7. SIMPONI [Suspect]
     Active Substance: GOLIMUMAB
     Indication: PSORIATIC ARTHROPATHY
     Dosage: STRENGTH = 50 MG
     Route: 042
     Dates: start: 20190811
  8. CALCIUM D [Concomitant]
     Active Substance: CALCIUM\VITAMIN D
     Dosage: STRENGTH = 500 MG
     Route: 048
  9. AMLODIPINE [Concomitant]
     Active Substance: AMLODIPINE BESYLATE

REACTIONS (8)
  - Infusion related reaction [Not Recovered/Not Resolved]
  - Drug ineffective [Unknown]
  - Psoriasis [Not Recovered/Not Resolved]
  - Psoriatic arthropathy [Not Recovered/Not Resolved]
  - Arthralgia [Unknown]
  - Hypertension [Not Recovered/Not Resolved]
  - Fall [Recovered/Resolved]
  - Contusion [Unknown]

NARRATIVE: CASE EVENT DATE: 202012
